FAERS Safety Report 21833962 (Version 2)
Quarter: 2023Q1

REPORT INFORMATION
  Report Type: Spontaneous
  Country: IQ (occurrence: IQ)
  Receive Date: 20230108
  Receipt Date: 20230202
  Transmission Date: 20230417
  Serious: Yes (Other)
  Sender: FDA-Public Use
  Company Number: IQ-PFIZER INC-202200247082

PATIENT
  Age: 60 Year
  Sex: Female

DRUGS (1)
  1. ENBREL [Suspect]
     Active Substance: ETANERCEPT
     Indication: Product used for unknown indication
     Dosage: 50 MILLIGRAM, WEEKLY (50MG ONCE WEEKLY)
     Route: 058

REACTIONS (5)
  - Tuberculosis [Unknown]
  - Pneumonia [Unknown]
  - Pneumonitis [Unknown]
  - Chest wall mass [Unknown]
  - Arthropathy [Unknown]
